FAERS Safety Report 10808733 (Version 1)
Quarter: 2015Q1

REPORT INFORMATION
  Report Type: Report from Study
  Country: US (occurrence: US)
  Receive Date: 20150217
  Receipt Date: 20150217
  Transmission Date: 20150721
  Serious: No
  Sender: FDA-Public Use
  Company Number: US-ABBVIE-14K-163-1228294-00

PATIENT
  Age: 48 Year
  Sex: Male

DRUGS (2)
  1. HUMIRA [Suspect]
     Active Substance: ADALIMUMAB
     Indication: PSORIATIC ARTHROPATHY
     Dates: start: 20140416
  2. MELOXI [Concomitant]
     Indication: ANTIINFLAMMATORY THERAPY

REACTIONS (2)
  - Increased appetite [Unknown]
  - Feeling drunk [Recovering/Resolving]

NARRATIVE: CASE EVENT DATE: 20140417
